FAERS Safety Report 10270796 (Version 2)
Quarter: 2014Q3

REPORT INFORMATION
  Report Type: Spontaneous
  Country: DE (occurrence: None)
  Receive Date: 20140626
  Receipt Date: 20140804
  Transmission Date: 20150326
  Serious: Yes (Hospitalization)
  Sender: FDA-Public Use
  Company Number: TTX201400081

PATIENT
  Sex: Female

DRUGS (9)
  1. VINCRISTINE SULFATE LIPOSOME [Suspect]
     Active Substance: VINCRISTINE SULFATE
     Indication: NON-HODGKIN^S LYMPHOMA
     Dosage: EVERY 14 DAYS
     Route: 042
     Dates: start: 20140305, end: 20140516
  2. PREDNISON (PREDNISONE) [Concomitant]
  3. PEGFILGRASTIM (PEGFILGRASTIM) [Concomitant]
     Active Substance: PEGFILGRASTIM
  4. DOXORUBICIN [Suspect]
     Active Substance: DOXORUBICIN
     Indication: NON-HODGKIN^S LYMPHOMA
     Dosage: EVERY 14 DAYS
     Route: 042
     Dates: start: 20140305, end: 20140516
  5. LANTUS [Concomitant]
     Active Substance: INSULIN GLARGINE
  6. CYCLOPHOSPHAMIDE (CYCLOPHOSPHAMIDE) [Suspect]
     Active Substance: CYCLOPHOSPHAMIDE
     Indication: NON-HODGKIN^S LYMPHOMA
     Dosage: EVERY 14 DAYS
     Route: 042
     Dates: start: 20140305, end: 20140516
  7. RITUXIMAB (RITUXIMAB) [Suspect]
     Active Substance: RITUXIMAB
     Indication: NON-HODGKIN^S LYMPHOMA
     Dosage: EVERY 14 DAYS
     Route: 042
     Dates: start: 20140304, end: 20140514
  8. BISOPROLOL (BISOPROLOL HEMIFUMARATE) [Concomitant]
  9. ACTRAPID [Concomitant]
     Active Substance: INSULIN HUMAN

REACTIONS (2)
  - Bronchopneumonia [None]
  - C-reactive protein increased [None]

NARRATIVE: CASE EVENT DATE: 20140602
